FAERS Safety Report 10103901 (Version 3)
Quarter: 2014Q3

REPORT INFORMATION
  Report Type: Other
  Country: US (occurrence: US)
  Receive Date: 20140424
  Receipt Date: 20140917
  Transmission Date: 20150326
  Serious: Yes (Other)
  Sender: FDA-Public Use
  Company Number: US-GSKPPD-2014GSK001456

PATIENT

DRUGS (1)
  1. AVANDIA [Suspect]
     Active Substance: ROSIGLITAZONE MALEATE
     Indication: DIABETES MELLITUS
     Route: 048

REACTIONS (7)
  - Cardiac arrest [Unknown]
  - Cardiac failure congestive [Unknown]
  - Liver injury [Unknown]
  - Myocardial infarction [Unknown]
  - Death [Unknown]
  - Oedema [Unknown]
  - Cerebrovascular accident [Unknown]
